FAERS Safety Report 4828276-7 (Version None)
Quarter: 2005Q4

REPORT INFORMATION
  Report Type: 
  Country: None (occurrence: None)
  Receive Date: 20051114
  Receipt Date: 20051114
  Transmission Date: 20060501
  Serious: Yes (Hospitalization)
  Sender: FDA-Public Use
  Company Number: None

PATIENT
  Age: 59 Year
  Sex: Female
  Weight: 58.2 kg

DRUGS (14)
  1. LASIX [Suspect]
     Indication: DIURETIC THERAPY
     Dosage: 20 MG PO DAILY CHRONIC
     Route: 048
  2. LASIX [Suspect]
     Indication: HYPERTENSION
     Dosage: 20 MG PO DAILY CHRONIC
     Route: 048
  3. HYDROCHLOROTHIAZIDE [Suspect]
     Indication: DIURETIC THERAPY
     Dosage: 50 MG , DAILY CHRONIC
  4. HYDROCHLOROTHIAZIDE [Suspect]
     Indication: HYPERTENSION
     Dosage: 50 MG , DAILY CHRONIC
  5. DILTIAZEM HCL [Concomitant]
  6. NEXIUM [Concomitant]
  7. EFFEXOR XR [Concomitant]
  8. PREDNISONE [Concomitant]
  9. CLONIDINE [Concomitant]
  10. FLORA Q [Concomitant]
  11. FORADIL [Concomitant]
  12. COMBIVENT [Concomitant]
  13. SPIRIVA [Concomitant]
  14. GUAIFENESIN [Concomitant]

REACTIONS (6)
  - DIARRHOEA [None]
  - ELECTROCARDIOGRAM CHANGE [None]
  - HYPOKALAEMIA [None]
  - HYPONATRAEMIA [None]
  - NAUSEA [None]
  - VOMITING [None]
